FAERS Safety Report 12945343 (Version 4)
Quarter: 2017Q2

REPORT INFORMATION
  Report Type: Spontaneous
  Country: ES (occurrence: ES)
  Receive Date: 20161116
  Receipt Date: 20170427
  Transmission Date: 20170830
  Serious: Yes (Other)
  Sender: FDA-Public Use
  Company Number: ES-AMGEN-ESPSP2016055776

PATIENT
  Age: 55 Year
  Sex: Male

DRUGS (15)
  1. ENBREL [Suspect]
     Active Substance: ETANERCEPT
     Dosage: 50 MG, WEEKLY
     Route: 058
  2. ENBREL [Suspect]
     Active Substance: ETANERCEPT
     Dosage: UNK
  3. ENBREL [Suspect]
     Active Substance: ETANERCEPT
     Dosage: 50 MG, WEEKLY
     Route: 058
  4. ENBREL [Suspect]
     Active Substance: ETANERCEPT
     Dosage: 50 MG, WEEKLY
     Route: 058
  5. ARAVA [Concomitant]
     Active Substance: LEFLUNOMIDE
     Indication: PSORIATIC ARTHROPATHY
     Dosage: 1 DF, 1X/DAY (1 TABLET EVERY 24 HOURS)
  6. LERCANIDIPINE [Concomitant]
     Active Substance: LERCANIDIPINE
     Indication: HYPERTENSION
     Dosage: 10 MG, 1X/DAY (1 TABLET EVERY 24 HOURS)
  7. ARAPRIDE [Concomitant]
     Indication: PROPHYLAXIS
     Dosage: 20 MG, 1X/DAY (1 TABLET EVERY 24 HOURS)
  8. DAIVOBET [Concomitant]
     Active Substance: BETAMETHASONE DIPROPIONATE\CALCIPOTRIENE
     Indication: PSORIATIC ARTHROPATHY
     Dosage: UNK, AS NEEDED
  9. ENBREL [Suspect]
     Active Substance: ETANERCEPT
     Dosage: UNK
     Route: 065
  10. CEMIDON [Concomitant]
     Active Substance: ISONIAZID
     Indication: ANTIBIOTIC PROPHYLAXIS
     Dosage: 1 DF, 1X/DAY (1 TABLET EVERY 24 HOURS)
     Dates: start: 201603, end: 20161104
  11. ENBREL [Suspect]
     Active Substance: ETANERCEPT
     Indication: PSORIATIC ARTHROPATHY
     Dosage: 50 MG, WEEKLY
     Route: 058
     Dates: start: 20160309
  12. CEMIDON [Concomitant]
     Active Substance: ISONIAZID
     Indication: ANTIBIOTIC PROPHYLAXIS
  13. ENALAPRIL + HIDROCLOROTIAZIDA [Concomitant]
     Indication: HYPERTENSION
     Dosage: 1 DF, 1X/DAY (1 TABLET EVERY 24 HOURS)
  14. ENBREL [Suspect]
     Active Substance: ETANERCEPT
     Dosage: 50 MG, WEEKLY
     Route: 058
  15. SIMVASTATIN. [Concomitant]
     Active Substance: SIMVASTATIN
     Indication: HYPERCHOLESTEROLAEMIA
     Dosage: 1 DF, UNK

REACTIONS (12)
  - Gait disturbance [Recovered/Resolved]
  - Pruritus [Recovered/Resolved]
  - Arthropod bite [Unknown]
  - Pain in extremity [Recovered/Resolved]
  - Inflammation [Recovered/Resolved]
  - Urticaria [Recovered/Resolved]
  - Hepatic steatosis [Unknown]
  - Viral upper respiratory tract infection [Not Recovered/Not Resolved]
  - Erythema [Not Recovered/Not Resolved]
  - Hepatic enzyme increased [Not Recovered/Not Resolved]
  - Injection site pain [Not Recovered/Not Resolved]
  - Drug effect incomplete [Not Recovered/Not Resolved]

NARRATIVE: CASE EVENT DATE: 2016
